FAERS Safety Report 17557690 (Version 1)
Quarter: 2020Q3

REPORT INFORMATION
  Report Type: Report from Study
  Country: BE (occurrence: BE)
  Receive Date: 20200318
  Receipt Date: 20200318
  Transmission Date: 20201105
  Serious: Yes (Other)
  Sender: FDA-Public Use
  Company Number: BE-TEVA-2020-BE-1167895

PATIENT
  Sex: Male
  Weight: 76 kg

DRUGS (3)
  1. POLATUZUMAB VEDOTIN. [Suspect]
     Active Substance: POLATUZUMAB VEDOTIN
     Indication: DIFFUSE LARGE B-CELL LYMPHOMA REFRACTORY
     Route: 065
     Dates: start: 201911
  2. RITUXIMAB. [Suspect]
     Active Substance: RITUXIMAB
     Indication: DIFFUSE LARGE B-CELL LYMPHOMA REFRACTORY
     Route: 065
  3. BENDAMUSTINE HYDROCHLORIDE. [Suspect]
     Active Substance: BENDAMUSTINE HYDROCHLORIDE
     Indication: DIFFUSE LARGE B-CELL LYMPHOMA REFRACTORY
     Route: 042

REACTIONS (4)
  - Product use in unapproved indication [Unknown]
  - Anaemia [Unknown]
  - Diarrhoea [Unknown]
  - Polyneuropathy [Unknown]
